FAERS Safety Report 6061392-3 (Version None)
Quarter: 2009Q1

REPORT INFORMATION
  Report Type: 
  Country: None (occurrence: None)
  Receive Date: 20090202
  Receipt Date: 20081215
  Transmission Date: 20090719
  Serious: No
  Sender: FDA-Public Use
  Company Number: US-BAYER-200840866NA

PATIENT
  Age: 63 Year
  Sex: Male

DRUGS (2)
  1. MAGNEVIST [Suspect]
     Indication: NUCLEAR MAGNETIC RESONANCE IMAGING BRAIN
     Dosage: TOTAL DAILY DOSE: 20 ML
     Dates: start: 20081215, end: 20081215
  2. BENADRYL [Concomitant]

REACTIONS (2)
  - DYSPNOEA [None]
  - URTICARIA [None]
